FAERS Safety Report 14869283 (Version 4)
Quarter: 2018Q3

REPORT INFORMATION
  Report Type: Report from Study
  Country: JP (occurrence: JP)
  Receive Date: 20180509
  Receipt Date: 20180920
  Transmission Date: 20181010
  Serious: Yes (Hospitalization)
  Sender: FDA-Public Use
  Company Number: PHJP2018JP009922

PATIENT
  Age: 1 Year
  Sex: Male

DRUGS (15)
  1. BAKTAR [Concomitant]
     Active Substance: SULFAMETHOXAZOLE\TRIMETHOPRIM
     Indication: PROPHYLAXIS
     Dosage: 0.5 G, UNK
     Route: 048
     Dates: start: 20170314
  2. ILARIS [Suspect]
     Active Substance: CANAKINUMAB
     Dosage: 16.5 MG, UNK
     Route: 058
     Dates: start: 20161213, end: 20161213
  3. ILARIS [Suspect]
     Active Substance: CANAKINUMAB
     Dosage: 31.5 MG, UNK
     Route: 058
     Dates: start: 20170404, end: 20170404
  4. ILARIS [Suspect]
     Active Substance: CANAKINUMAB
     Dosage: 63 MG, UNK
     Route: 058
     Dates: start: 20170725
  5. LAC?B [Concomitant]
     Active Substance: BIFIDOBACTERIUM SPP.
     Indication: PROPHYLAXIS AGAINST DIARRHOEA
     Dosage: 0.8 G, UNK
     Route: 048
     Dates: start: 20170223, end: 20170304
  6. INFLUENZA VACCINE [Concomitant]
     Active Substance: INFLUENZA VIRUS VACCINE
     Indication: PROPHYLAXIS
     Dosage: 0.25 ML, UNK
     Route: 065
     Dates: start: 20161115, end: 20161115
  7. INFLUENZA VACCINE [Concomitant]
     Active Substance: INFLUENZA VIRUS VACCINE
     Dosage: 0.25 ML, UNK
     Route: 065
     Dates: start: 20170110, end: 20170110
  8. ILARIS [Suspect]
     Active Substance: CANAKINUMAB
     Dosage: 16.5 MG, UNK
     Route: 058
     Dates: start: 20161018, end: 20161018
  9. PHENOBAL [Concomitant]
     Active Substance: PHENOBARBITAL
     Indication: CHRONIC INFANTILE NEUROLOGICAL CUTANEOUS AND ARTICULAR SYNDROME
     Dosage: 40 MG, UNK
     Route: 048
  10. INCREMIN [Concomitant]
     Active Substance: FERRIC PYROPHOSPHATE
     Indication: CHRONIC INFANTILE NEUROLOGICAL CUTANEOUS AND ARTICULAR SYNDROME
     Dosage: 6 MG, UNK
     Route: 048
  11. ILARIS [Suspect]
     Active Substance: CANAKINUMAB
     Dosage: 16.5 MG, UNK
     Route: 058
     Dates: start: 20170207, end: 20170207
  12. ILARIS [Suspect]
     Active Substance: CANAKINUMAB
     Indication: CRYOPYRIN ASSOCIATED PERIODIC SYNDROME
     Dosage: 15 MG, UNK
     Route: 058
     Dates: start: 20160823, end: 20160823
  13. ILARIS [Suspect]
     Active Substance: CANAKINUMAB
     Dosage: 46.5 MG, UNK
     Route: 058
     Dates: start: 20170530, end: 20170530
  14. SYNAGIS [Concomitant]
     Active Substance: PALIVIZUMAB
     Indication: PROPHYLAXIS
     Dosage: 120 MG, UNK
     Route: 065
     Dates: start: 20170228
  15. CEFOTAXIME [Concomitant]
     Active Substance: CEFOTAXIME SODIUM
     Indication: PROPHYLAXIS
     Dosage: 900 MG, UNK
     Route: 065
     Dates: start: 20170222, end: 20170224

REACTIONS (4)
  - Dermatitis diaper [Recovering/Resolving]
  - Hepatitis [Unknown]
  - Hepatic function abnormal [Recovering/Resolving]
  - Hyperphagia [Unknown]

NARRATIVE: CASE EVENT DATE: 20170404
